FAERS Safety Report 10544869 (Version 2)
Quarter: 2015Q1

REPORT INFORMATION
  Report Type: Spontaneous
  Country: US (occurrence: US)
  Receive Date: 20141027
  Receipt Date: 20150224
  Transmission Date: 20150720
  Serious: Yes (Hospitalization, Other)
  Sender: FDA-Public Use
  Company Number: US-BAYER-2014-155072

PATIENT
  Age: 24 Year
  Sex: Female
  Weight: 68.27 kg

DRUGS (5)
  1. ZOFRAN [Concomitant]
     Active Substance: ONDANSETRON HYDROCHLORIDE
  2. MIRENA [Suspect]
     Active Substance: LEVONORGESTREL
     Indication: CONTRACEPTION
     Dosage: 20 MCG/24HR, CONT
     Route: 015
     Dates: start: 20131017, end: 20131025
  3. PERCOCET [Concomitant]
     Active Substance: ACETAMINOPHEN\OXYCODONE HYDROCHLORIDE
  4. ROCEPHIN [Concomitant]
     Active Substance: CEFTRIAXONE SODIUM
  5. IBUPROFEN. [Concomitant]
     Active Substance: IBUPROFEN

REACTIONS (27)
  - Asthenia [None]
  - Vaginal disorder [None]
  - Malaise [None]
  - Uterine haemorrhage [None]
  - Anxiety [None]
  - Chills [None]
  - Uterine cervical pain [Not Recovered/Not Resolved]
  - Injury [None]
  - Medical device complication [None]
  - Abdominal pain [None]
  - Fatigue [None]
  - Pain [None]
  - Back pain [None]
  - Anaemia [None]
  - Infection [None]
  - Emotional distress [None]
  - Dizziness [None]
  - Device dislocation [None]
  - Pelvic inflammatory disease [None]
  - Pelvic pain [None]
  - Genital haemorrhage [None]
  - Pyrexia [None]
  - Hypersensitivity [None]
  - Abdominal pain lower [None]
  - Device dislocation [None]
  - Infertility female [None]
  - Nausea [None]

NARRATIVE: CASE EVENT DATE: 201310
